FAERS Safety Report 9087025 (Version 2)
Quarter: 2013Q1

REPORT INFORMATION
  Report Type: Spontaneous
  Country: AU (occurrence: AU)
  Receive Date: 20130217
  Receipt Date: 20130228
  Transmission Date: 20140127
  Serious: Yes (Hospitalization, Other)
  Sender: FDA-Public Use
  Company Number: AU-JNJFOC-20130205056

PATIENT
  Age: 49 Year
  Sex: Male
  Weight: 93 kg

DRUGS (6)
  1. REMICADE [Suspect]
     Indication: PYODERMA GANGRENOSUM
     Route: 042
     Dates: start: 20120531
  2. REMICADE [Suspect]
     Indication: PYODERMA GANGRENOSUM
     Route: 042
     Dates: start: 20121108
  3. REMICADE [Suspect]
     Indication: PYODERMA GANGRENOSUM
     Route: 042
     Dates: start: 20120928
  4. REMICADE [Suspect]
     Indication: PYODERMA GANGRENOSUM
     Route: 042
  5. REMICADE [Suspect]
     Indication: PYODERMA GANGRENOSUM
     Route: 042
     Dates: start: 20120402
  6. REMICADE [Suspect]
     Indication: PYODERMA GANGRENOSUM
     Route: 042
     Dates: start: 20120209

REACTIONS (4)
  - Fistula [Recovered/Resolved]
  - Diverticulitis [Recovered/Resolved]
  - Colectomy [Unknown]
  - Colostomy closure [Recovering/Resolving]
